FAERS Safety Report 10762519 (Version 1)
Quarter: 2015Q1

REPORT INFORMATION
  Report Type: Spontaneous
  Country: US (occurrence: None)
  Receive Date: 20150129
  Receipt Date: 20150129
  Transmission Date: 20150721
  Serious: Yes (Other)
  Sender: FDA-Public Use
  Company Number: 113900

PATIENT
  Age: 59 Year
  Sex: Male

DRUGS (2)
  1. KEPPRA XR [Suspect]
     Active Substance: LEVETIRACETAM
     Indication: EPILEPSY
     Dosage: TOTAL DAILY DOSE: 1000 MG
  2. CHANTIX [Concomitant]
     Active Substance: VARENICLINE TARTRATE
     Dates: end: 20140203

REACTIONS (1)
  - Seizure [None]

NARRATIVE: CASE EVENT DATE: 2013
